FAERS Safety Report 16822304 (Version 2)
Quarter: 2020Q1

REPORT INFORMATION
  Report Type: Spontaneous
  Country: US (occurrence: US)
  Receive Date: 20190918
  Receipt Date: 20200116
  Transmission Date: 20200409
  Serious: No
  Sender: FDA-Public Use
  Company Number: US-PFIZER INC-2019271964

PATIENT
  Age: 53 Year
  Sex: Female

DRUGS (2)
  1. XELJANZ [Suspect]
     Active Substance: TOFACITINIB CITRATE
     Indication: RHEUMATOID ARTHRITIS
     Dosage: 5 MG, 2X/DAY
     Route: 048
     Dates: start: 20190523
  2. XELJANZ [Suspect]
     Active Substance: TOFACITINIB CITRATE
     Dosage: 5 MG, 2X/DAY
     Route: 048
     Dates: start: 20190523

REACTIONS (5)
  - Ear pain [Unknown]
  - Neck pain [Unknown]
  - Chest pain [Unknown]
  - Rhinorrhoea [Unknown]
  - Influenza like illness [Unknown]

NARRATIVE: CASE EVENT DATE: 20190911
